FAERS Safety Report 8833056 (Version 1)
Quarter: 2012Q4

REPORT INFORMATION
  Report Type: 
  Country: FR (occurrence: FR)
  Receive Date: 20121010
  Receipt Date: 20121010
  Transmission Date: 20130627
  Serious: Yes (Hospitalization)
  Sender: FDA-Public Use
  Company Number: FR-BAYER-2012-103803

PATIENT
  Age: 67 Year
  Sex: Male

DRUGS (8)
  1. IZILOX [Suspect]
     Dosage: 400 mg, QD
     Route: 048
     Dates: start: 20120830, end: 20120903
  2. RIFAMPICINE [Suspect]
     Indication: DISSEMINATED TUBERCULOSIS
     Dosage: 700 mg, QD
     Route: 048
     Dates: start: 20120718, end: 20120828
  3. RIFAMPICINE [Suspect]
     Indication: DISSEMINATED TUBERCULOSIS
  4. ISONIAZIDE [Suspect]
     Indication: DISSEMINATED TUBERCULOSIS
     Dosage: 350 mg, QD
     Route: 048
     Dates: start: 20120718
  5. ISONIAZIDE [Suspect]
     Indication: DISSEMINATED TUBERCULOSIS
  6. PYRAZINAMIDE [Suspect]
     Indication: DISSEMINATED TUBERCULOSIS
     Dosage: 2000 mg, QD
     Route: 048
     Dates: start: 20120718
  7. DEXAMBUTOL [Suspect]
     Indication: DISSEMINATED TUBERCULOSIS
     Dosage: 1500 mg, QD
     Route: 048
     Dates: start: 20120718
  8. GRANOCYTE [Concomitant]

REACTIONS (1)
  - Agranulocytosis [Recovered/Resolved]
